FAERS Safety Report 8770245 (Version 7)
Quarter: 2013Q2

REPORT INFORMATION
  Report Type: Report from Study
  Country: US (occurrence: US)
  Receive Date: 20120904
  Receipt Date: 20130607
  Transmission Date: 20140414
  Serious: Yes (Life-Threatening, Hospitalization)
  Sender: FDA-Public Use
  Company Number: US-ROCHE-1107798

PATIENT
  Age: 50 Year
  Sex: Male
  Weight: 83.9 kg

DRUGS (1)
  1. VISMODEGIB [Suspect]
     Indication: BASAL CELL CARCINOMA
     Dosage: DATE OF LAST DOSE 12/AUG/2012
     Route: 048
     Dates: start: 20120719

REACTIONS (2)
  - Hepatitis [Recovered/Resolved]
  - Haemorrhoidal haemorrhage [Recovered/Resolved]
